FAERS Safety Report 4369332-X (Version None)
Quarter: 2004Q2

REPORT INFORMATION
  Report Type: 
  Country: None (occurrence: None)
  Receive Date: 20040527
  Receipt Date: 20040511
  Transmission Date: 20050107
  Serious: Yes (Hospitalization, Other)
  Sender: FDA-Public Use
  Company Number: USA040567276

PATIENT
  Age: 66 Year
  Sex: Female
  Weight: 36 kg

DRUGS (1)
  1. EVISTA [Suspect]
     Indication: OSTEOPOROSIS
     Dates: start: 20031001

REACTIONS (6)
  - COLOSTOMY [None]
  - GASTRIC CANCER [None]
  - METASTASES TO GASTROINTESTINAL TRACT [None]
  - METASTASES TO OESOPHAGUS [None]
  - METASTASIS [None]
  - WEIGHT DECREASED [None]
